FAERS Safety Report 9014643 (Version 2)
Quarter: 2013Q4

REPORT INFORMATION
  Report Type: Report from Study
  Country: JP (occurrence: JP)
  Receive Date: 20130115
  Receipt Date: 20131017
  Transmission Date: 20140711
  Serious: Yes (Other)
  Sender: FDA-Public Use
  Company Number: JP-VERTEX PHARMACEUTICALS INC.-2013-000594

PATIENT
  Age: 39 Year
  Sex: Male

DRUGS (21)
  1. VX-950 (TELAPREVIR) [Suspect]
     Indication: CHRONIC HEPATITIS C
     Dosage: 2250 MG, QD
     Route: 048
     Dates: start: 20120518, end: 20120621
  2. VX-950 (TELAPREVIR) [Suspect]
     Dosage: 2000 MG, QD
     Route: 048
     Dates: start: 20120622, end: 20120628
  3. VX-950 (TELAPREVIR) [Suspect]
     Dosage: 1750 MG, QD
     Route: 048
     Dates: start: 20120629, end: 20120809
  4. PEGINTERFERON ALFA-2B [Suspect]
     Indication: CHRONIC HEPATITIS C
     Dosage: 1.5 ?G/KG, QW
     Route: 058
     Dates: start: 20120518, end: 20120531
  5. PEGINTERFERON ALFA-2B [Suspect]
     Dosage: 0.8 ?G/KG, QW
     Route: 058
     Dates: start: 20120607, end: 20120614
  6. PEGINTERFERON ALFA-2B [Suspect]
     Dosage: 1.0 ?G/KG, QW
     Route: 058
     Dates: start: 20120622, end: 20120622
  7. PEGINTERFERON ALFA-2B [Suspect]
     Dosage: 1.3 ?G/KG, QW
     Route: 058
     Dates: start: 20120629, end: 20120713
  8. PEGINTERFERON ALFA-2B [Suspect]
     Dosage: 1.5 ?G/KG, QW
     Route: 058
     Dates: start: 20120720, end: 20120803
  9. PEGINTERFERON ALFA-2B [Suspect]
     Dosage: 1.3 ?G/KG, QW
     Route: 058
     Dates: start: 20120810, end: 20120810
  10. PEGINTERFERON ALFA-2B [Suspect]
     Dosage: 1.0 ?G/KG, QW
     Route: 058
     Dates: start: 20120810, end: 20120810
  11. PEGINTERFERON ALFA-2B [Suspect]
     Dosage: 1.3 ?G/KG, QW
     Route: 058
     Dates: start: 20120817, end: 20120921
  12. PEGINTERFERON ALFA-2B [Suspect]
     Dosage: 0.8 ?G/KG, QW
     Route: 058
     Dates: start: 20120928, end: 20121005
  13. PEGINTERFERON ALFA-2B [Suspect]
     Dosage: 1.0 ?G/KG, QW
     Route: 058
     Dates: start: 20121012, end: 20121026
  14. RIBAVIRIN [Suspect]
     Indication: CHRONIC HEPATITIS C
     Dosage: 800 MG, QD
     Route: 048
     Dates: start: 20120518, end: 20120621
  15. RIBAVIRIN [Suspect]
     Dosage: 600 MG, QD
     Route: 048
     Dates: start: 20120622, end: 20120628
  16. RIBAVIRIN [Suspect]
     Dosage: 400 MG, QD
     Dates: start: 20120629, end: 20120830
  17. RIBAVIRIN [Suspect]
     Dosage: 400 AND 600 MG, QOD
     Route: 048
     Dates: start: 20120831, end: 20120906
  18. RIBAVIRIN [Suspect]
     Dosage: 600 MG, QD
     Route: 048
     Dates: start: 20120907, end: 20120928
  19. RIBAVIRIN [Suspect]
     Dosage: 800 MG, QD
     Route: 048
     Dates: start: 20120929, end: 20121101
  20. HIRUDOID [Concomitant]
     Dosage: UNK, PRN
     Route: 061
     Dates: start: 20120518
  21. ALLEGRA [Concomitant]
     Dosage: 240 MG, QD
     Route: 048

REACTIONS (1)
  - White blood cell count decreased [Not Recovered/Not Resolved]
